FAERS Safety Report 9972854 (Version 1)
Quarter: 2014Q1

REPORT INFORMATION
  Report Type: Spontaneous
  Country: US (occurrence: US)
  Receive Date: 20140306
  Receipt Date: 20140306
  Transmission Date: 20141002
  Serious: Yes (Hospitalization)
  Sender: FDA-Public Use
  Company Number: US-MYLANLABS-2014S1004455

PATIENT
  Age: 89 Year
  Sex: Female

DRUGS (2)
  1. AMANTADINE [Suspect]
     Indication: INFLUENZA
     Route: 065
  2. DIPHENHYDRAMINE [Suspect]
     Indication: HYPERSENSITIVITY
     Dosage: AT BEDTIME
     Route: 065

REACTIONS (3)
  - Delirium [Recovered/Resolved]
  - Mania [Recovered/Resolved]
  - Psychotic behaviour [Recovered/Resolved]
